FAERS Safety Report 7006531-2 (Version None)
Quarter: 2010Q3

REPORT INFORMATION
  Report Type: 
  Country: None (occurrence: None)
  Receive Date: 20100921
  Receipt Date: 20100921
  Transmission Date: 20110219
  Serious: Yes (Hospitalization)
  Sender: FDA-Public Use
  Company Number: None

PATIENT
  Age: 55 Year
  Weight: 57.1532 kg

DRUGS (11)
  1. EVEROLIMUS RAD 001 [Suspect]
     Indication: BREAST CANCER METASTATIC
     Dosage: 5 MG BY MOUTH DAILY
     Route: 048
     Dates: start: 20100702, end: 20100916
  2. CISPLATIN [Suspect]
     Indication: BREAST CANCER METASTATIC
     Dosage: 42MG CISPLATIN; 133MG
     Dates: start: 20100702, end: 20100910
  3. TAXOL [Suspect]
  4. LEVAQUIN [Concomitant]
  5. CYMBALTA [Concomitant]
  6. LISINOPRIL [Concomitant]
  7. GABAPENTIN [Concomitant]
  8. CATAPRES [Concomitant]
  9. OSCAL [Concomitant]
  10. TYLENOL W/ CODEINE NO. 4 [Concomitant]
  11. COMPAZINE [Concomitant]

REACTIONS (1)
  - PNEUMONIA [None]
